FAERS Safety Report 5235303-4 (Version None)
Quarter: 2007Q2

REPORT INFORMATION
  Report Type: 
  Country: None (occurrence: None)
  Receive Date: 20070207
  Receipt Date: 20070207
  Transmission Date: 20071010
  Serious: Yes (Other)
  Sender: FDA-Public Use
  Company Number: None

PATIENT
  Age: 51 Year
  Sex: Male
  Weight: 133.8 kg

DRUGS (2)
  1. CELEXA [Suspect]
  2. ALPRAZOLAM [Concomitant]

REACTIONS (2)
  - ANOREXIA [None]
  - ANXIETY [None]
